FAERS Safety Report 9103387 (Version 3)
Quarter: 2013Q3

REPORT INFORMATION
  Report Type: Report from Study
  Country: JP (occurrence: JP)
  Receive Date: 20130219
  Receipt Date: 20130903
  Transmission Date: 20140515
  Serious: Yes (Other)
  Sender: FDA-Public Use
  Company Number: JP-VERTEX PHARMACEUTICALS INC.-2013-002201

PATIENT
  Age: 58 Year
  Sex: Female

DRUGS (9)
  1. VX-950 (TELAPREVIR) [Suspect]
     Indication: CHRONIC HEPATITIS C
     Dosage: 1500 MG, QD
     Route: 048
     Dates: start: 20120808, end: 20120919
  2. REBETOL [Suspect]
     Indication: CHRONIC HEPATITIS C
     Dosage: 400 MG, QD
     Route: 048
     Dates: start: 20120808, end: 20120822
  3. REBETOL [Suspect]
     Dosage: 200 MG, QD
     Route: 048
     Dates: start: 20120823, end: 20121226
  4. REBETOL [Suspect]
     Dosage: 400 MG, QD
     Route: 048
     Dates: start: 20121227, end: 20130123
  5. PEGINTRON [Suspect]
     Indication: CHRONIC HEPATITIS C
     Dosage: 1.5 ?G/KG, QW
     Route: 058
     Dates: start: 20120808, end: 20121122
  6. PEGINTRON [Suspect]
     Dosage: 1.2 ?G/KG, QW
     Route: 058
     Dates: start: 20121129, end: 20121206
  7. PEGINTRON [Suspect]
     Dosage: 1 ?G/KG, QW
     Route: 058
     Dates: start: 20121213, end: 20130110
  8. PEGINTRON [Suspect]
     Dosage: 0.8 ?G/KG, QW
     Route: 058
     Dates: start: 20130117, end: 20130117
  9. TALION [Concomitant]
     Dosage: 20 MG, QD
     Route: 048
     Dates: start: 20120808

REACTIONS (1)
  - Neutrophil count decreased [Recovered/Resolved]
